FAERS Safety Report 9469709 (Version 1)
Quarter: 2013Q3

REPORT INFORMATION
  Report Type: Spontaneous
  Country: US (occurrence: US)
  Receive Date: 20130822
  Receipt Date: 20130822
  Transmission Date: 20140515
  Serious: Yes (Other)
  Sender: FDA-Public Use
  Company Number: PHEH2013US017506

PATIENT
  Sex: Female

DRUGS (1)
  1. VIVELLE DOT [Suspect]
     Dosage: 0.05 MG, QW2 (EVERY 3 DAYS)
     Route: 062

REACTIONS (3)
  - Perineurial cyst [Unknown]
  - Nausea [Unknown]
  - Wrong technique in drug usage process [Unknown]
